FAERS Safety Report 11405593 (Version 5)
Quarter: 2020Q1

REPORT INFORMATION
  Report Type: Spontaneous
  Country: US (occurrence: US)
  Receive Date: 20150821
  Receipt Date: 20200304
  Transmission Date: 20200409
  Serious: No
  Sender: FDA-Public Use
  Company Number: US-PFIZER INC-2015276050

PATIENT
  Age: 67 Year
  Sex: Female
  Weight: 89.81 kg

DRUGS (20)
  1. ALBUTEROL SULFATE. [Concomitant]
     Active Substance: ALBUTEROL SULFATE
     Indication: RESPIRATORY DISORDER
     Dosage: AS NEEDED 4X/DAY (0.63 MG/3 ML)
     Dates: start: 20140421
  2. FLOVENT HFA [Concomitant]
     Active Substance: FLUTICASONE PROPIONATE
     Indication: RESPIRATORY DISORDER
     Dosage: 44 UG, 2X/DAY (INHALES TWO PUFFS BY MOUTH TWICE DAILY)
     Route: 048
     Dates: start: 20100323
  3. ZANTAC [Concomitant]
     Active Substance: RANITIDINE HYDROCHLORIDE
     Indication: GASTRIC DISORDER
     Dosage: 150 MG, AS NEEDED (1 TABLET BY MOUTH TWICE A DAY AS NEEDED)
     Route: 048
     Dates: start: 20120420
  4. LANTUS [Concomitant]
     Active Substance: INSULIN GLARGINE
     Indication: DIABETES MELLITUS
     Dosage: 45 IU, DAILY
     Route: 058
     Dates: start: 20110527
  5. XELJANZ [Suspect]
     Active Substance: TOFACITINIB CITRATE
     Indication: ARTHRITIS
     Dosage: 5 MG, 2X/DAY (ONE TABLET IN THE MORNING AND ONE IN THE EVENING AT BEDTIME)
     Route: 048
  6. ALBUTEROL SULFATE. [Concomitant]
     Active Substance: ALBUTEROL SULFATE
     Indication: DYSPNOEA
     Dosage: 90 UG, AS NEEDED (1 TO 2 PUFFS AS DIRECTED EVERY 4 TO 6 HOURS AS NEEDED)
     Dates: start: 20110908
  7. VITAMIN D3 [Concomitant]
     Active Substance: CHOLECALCIFEROL
     Indication: VITAMIN SUPPLEMENTATION
     Dosage: 50000 IU, WEEKLY ()TAKE ONE TABLET BY MOUTH ONCE A WEEK)_
     Dates: start: 20140829
  8. XELJANZ [Suspect]
     Active Substance: TOFACITINIB CITRATE
     Indication: RHEUMATOID ARTHRITIS
     Dosage: 5 MG, 2X/DAY
     Dates: start: 20140623
  9. HYDROCODONE/ACETAMINOPHEN [Concomitant]
     Active Substance: ACETAMINOPHEN\HYDROCODONE
     Indication: PAIN
     Dosage: UNK, AS NEEDED (HYDROCODONE BITARTRATE: 7.5 MG; PARACETAMOL: 300 MG)
     Route: 048
     Dates: start: 20141230
  10. VOLTAREN [Concomitant]
     Active Substance: DICLOFENAC SODIUM
     Dosage: 1 G, AS NEEDED (1 GRAM APPLY TO AFFECTED AREA THREE TIMES DAILY DAILY AS NEEDED)
     Dates: start: 20150712
  11. ALLEGRA [Concomitant]
     Active Substance: FEXOFENADINE HYDROCHLORIDE
     Dosage: 60 MG, DAILY
     Route: 048
  12. CARISOPRODOL. [Concomitant]
     Active Substance: CARISOPRODOL
     Indication: MUSCLE SPASMS
     Dosage: 300 MG, AS NEEDED (1 TABLET BY MOUTH THREE TIMES DALLY AS NEEDED)
     Route: 048
     Dates: start: 20131204
  13. CARISOPRODOL. [Concomitant]
     Active Substance: CARISOPRODOL
     Indication: PAIN
  14. FLOVENT HFA [Concomitant]
     Active Substance: FLUTICASONE PROPIONATE
     Dosage: 110 UG, 2X/DAY (2 PUFF TWICE A DAY)
     Dates: start: 20150810
  15. VITAMIN D2 [Concomitant]
     Active Substance: ERGOCALCIFEROL
     Dosage: 1.25 MG, WEEKLY (ONE CAPSULE BY MOUTH EVERY WEEK)
     Route: 048
     Dates: start: 20150712
  16. INSULIN [Concomitant]
     Active Substance: INSULIN NOS
     Indication: DIABETES MELLITUS
     Dosage: 0.3 ML, 4X/DAY
     Dates: start: 20140606
  17. LEVOTHYROXINE. [Concomitant]
     Active Substance: LEVOTHYROXINE
     Indication: THYROID DISORDER
     Dosage: 112 UG, DAILY
     Route: 048
     Dates: start: 20131205
  18. HUMULIN R [Concomitant]
     Active Substance: INSULIN HUMAN
     Indication: DIABETES MELLITUS
     Dosage: UNK
     Dates: start: 20081120
  19. ENALAPRIL [Concomitant]
     Active Substance: ENALAPRIL
     Indication: BLOOD PRESSURE ABNORMAL
     Dosage: 20 MG, DAILY
     Route: 048
     Dates: start: 20111014
  20. HUMULIN NOS [Concomitant]
     Active Substance: INSULIN HUMAN
     Indication: DIABETES MELLITUS
     Dosage: 12 DF, DAILY (INSULIN HUMAN: 70; ISOPHANE: 30)
     Route: 058
     Dates: start: 20131102

REACTIONS (5)
  - Fall [Not Recovered/Not Resolved]
  - Peripheral coldness [Not Recovered/Not Resolved]
  - Bone pain [Not Recovered/Not Resolved]
  - Arthropathy [Not Recovered/Not Resolved]
  - Feeling cold [Not Recovered/Not Resolved]

NARRATIVE: CASE EVENT DATE: 20150817
